FAERS Safety Report 23907151 (Version 1)
Quarter: 2024Q2

REPORT INFORMATION
  Report Type: Spontaneous
  Country: DK (occurrence: DK)
  Receive Date: 20240528
  Receipt Date: 20240528
  Transmission Date: 20240716
  Serious: Yes (Other)
  Sender: FDA-Public Use
  Company Number: DK-ALKEM LABORATORIES LIMITED-DK-ALKEM-2024-10631

PATIENT
  Age: 22 Year
  Sex: Male

DRUGS (1)
  1. MESALAMINE [Suspect]
     Active Substance: MESALAMINE
     Indication: Colitis ulcerative
     Dosage: 2 GRAM, BID (SLOW-RELEASE TABLETS)
     Route: 065

REACTIONS (3)
  - Biliary obstruction [Recovered/Resolved]
  - Cholangitis [Recovered/Resolved]
  - Pulmonary mass [Recovered/Resolved]
